FAERS Safety Report 8221495-1 (Version None)
Quarter: 2012Q1

REPORT INFORMATION
  Report Type: 
  Country: None (occurrence: None)
  Receive Date: 20120320
  Receipt Date: 20120316
  Transmission Date: 20120608
  Serious: Yes (Death, Other)
  Sender: FDA-Public Use
  Company Number: PHHY2012CH023386

PATIENT
  Age: 69 Year
  Sex: Male
  Weight: 69 kg

DRUGS (1)
  1. FLECAINIDE ACETATE [Suspect]
     Indication: SUPRAVENTRICULAR TACHYCARDIA
     Dosage: 100 MG, UNK

REACTIONS (5)
  - TOXICITY TO VARIOUS AGENTS [None]
  - ARTERIOSCLEROSIS CORONARY ARTERY [None]
  - DRUG LEVEL INCREASED [None]
  - RENAL FAILURE [None]
  - DRY SKIN [None]
